FAERS Safety Report 10192639 (Version 1)
Quarter: 2014Q2

REPORT INFORMATION
  Report Type: Report from Study
  Country: US (occurrence: US)
  Receive Date: 20140523
  Receipt Date: 20140523
  Transmission Date: 20141212
  Serious: Yes (Other)
  Sender: FDA-Public Use
  Company Number: US-BAXTER-2014BAX024832

PATIENT
  Sex: 0

DRUGS (2)
  1. CYCLOPHOSPHAMIDE FOR INJECTION, USP [Suspect]
     Indication: CHRONIC LYMPHOCYTIC LEUKAEMIA
     Route: 065
  2. ACETAMINOPHEN [Concomitant]
     Indication: PROPHYLAXIS
     Route: 065

REACTIONS (2)
  - Neutropenia [Unknown]
  - Cellulitis [Unknown]
